FAERS Safety Report 7815570-0 (Version None)
Quarter: 2011Q4

REPORT INFORMATION
  Report Type: 
  Country: None (occurrence: None)
  Receive Date: 20111014
  Receipt Date: 20110928
  Transmission Date: 20120403
  Serious: Yes (Other)
  Sender: FDA-Public Use
  Company Number: US-ROCHE-1001155

PATIENT

DRUGS (4)
  1. PACLITAXEL [Suspect]
     Indication: OVARIAN CANCER
  2. AVASTIN [Suspect]
     Indication: OVARIAN CANCER
  3. CARBOPLATIN [Suspect]
     Indication: OVARIAN CANCER
  4. TARCEVA [Suspect]
     Indication: OVARIAN CANCER

REACTIONS (3)
  - HYPERTENSION [None]
  - VAGINAL LACERATION [None]
  - THROMBOSIS [None]
